FAERS Safety Report 14640073 (Version 7)
Quarter: 2020Q1

REPORT INFORMATION
  Report Type: Spontaneous
  Country: FR (occurrence: FR)
  Receive Date: 20180315
  Receipt Date: 20200225
  Transmission Date: 20200409
  Serious: Yes (Hospitalization, Other)
  Sender: FDA-Public Use
  Company Number: FR-MYLANLABS-2018M1016813

PATIENT
  Age: 74 Year
  Sex: Male
  Weight: 98 kg

DRUGS (19)
  1. CORTISONE [Concomitant]
     Active Substance: CORTISONE
     Dosage: 20 MG, QD, EASTER
     Route: 065
  2. IBUFETUM [Concomitant]
     Active Substance: IBUPROFEN
     Indication: PRODUCT USED FOR UNKNOWN INDICATION
     Dosage: 3 DF, QD,1 APPLICATION THREE TIMES A DA
     Route: 065
     Dates: start: 20171009
  3. DOLIPRANE [Concomitant]
     Active Substance: ACETAMINOPHEN
     Indication: PRODUCT USED FOR UNKNOWN INDICATION
     Dosage: 3 GRAM
     Route: 065
  4. ELIQUIS [Suspect]
     Active Substance: APIXABAN
     Indication: ANTICOAGULANT THERAPY
     Dosage: 5 MILLIGRAM, QD
     Route: 065
  5. AMIODARONE SANDOZ [Suspect]
     Active Substance: AMIODARONE
     Indication: ARRHYTHMIA
     Dosage: 1 DF, QD
     Route: 065
     Dates: start: 20170911, end: 20171209
  6. ELIQUIS [Suspect]
     Active Substance: APIXABAN
     Dosage: 1 DF, BID (1 MORNING AND 1 IN EVENING)
     Route: 065
  7. CORTISONE [Concomitant]
     Active Substance: CORTISONE
     Dosage: 10 MILLIGRAM, QD
     Route: 065
  8. AMIODARONE SANDOZ [Suspect]
     Active Substance: AMIODARONE
     Indication: ATRIAL FIBRILLATION
     Dosage: UNK
     Route: 065
     Dates: start: 20171106
  9. AMIODARONE SANDOZ [Suspect]
     Active Substance: AMIODARONE
     Dosage: UNK
     Dates: start: 20171009
  10. CORTISONE [Concomitant]
     Active Substance: CORTISONE
     Indication: PAIN
     Dosage: 60 MILLIGRAM, QD
     Route: 065
     Dates: start: 20171229
  11. LOVENOX [Concomitant]
     Active Substance: ENOXAPARIN SODIUM
     Indication: PRODUCT USED FOR UNKNOWN INDICATION
     Dosage: UNK, Q12H (6000 IU ANTI XA/0.6 ML SYRINGE)
     Route: 058
     Dates: start: 20170805
  12. AMIODARONE SANDOZ [Suspect]
     Active Substance: AMIODARONE
     Dosage: UNK
     Route: 065
     Dates: end: 20171228
  13. OFLOCET                            /00731801/ [Concomitant]
     Active Substance: OFLOXACIN
     Indication: PRODUCT USED FOR UNKNOWN INDICATION
     Dosage: 200 MG (IN THE MORNING AN EVENING FOR 10 DAY WAS PROPOSED)
  14. BISOPROLOL [Suspect]
     Active Substance: BISOPROLOL
     Indication: PRODUCT USED FOR UNKNOWN INDICATION
     Dosage: 2.5 MG, QD (MORNING)
     Route: 065
     Dates: start: 20170805
  15. CORTISONE [Concomitant]
     Active Substance: CORTISONE
     Dosage: 10 UNK
     Route: 065
  16. BISOPROLOL [Suspect]
     Active Substance: BISOPROLOL
     Dosage: 10 MG, IN THE MORNING
     Route: 065
  17. COLCHICINE. [Concomitant]
     Active Substance: COLCHICINE
     Indication: OEDEMA
     Route: 065
  18. COLCHICINE. [Concomitant]
     Active Substance: COLCHICINE
     Indication: GOUT
  19. COLCHICINE. [Concomitant]
     Active Substance: COLCHICINE
     Indication: INFLAMMATION

REACTIONS (46)
  - Taste disorder [Recovered/Resolved]
  - Dizziness [Recovered/Resolved]
  - Gait inability [Not Recovered/Not Resolved]
  - Pain in extremity [Unknown]
  - Myalgia [Recovered/Resolved]
  - Inflammation [Unknown]
  - Urinary tract disorder [Recovered/Resolved]
  - Vomiting [Recovered/Resolved]
  - Renal injury [Recovered/Resolved]
  - Movement disorder [Unknown]
  - Paralysis [Unknown]
  - Dyspnoea [Unknown]
  - Neck pain [Unknown]
  - Product dispensing error [Unknown]
  - Blood creatinine increased [Recovered/Resolved]
  - Somatic dysfunction [Unknown]
  - Musculoskeletal pain [Unknown]
  - Blood creatinine increased [Unknown]
  - Vertigo [Not Recovered/Not Resolved]
  - Dyspnoea [Recovered/Resolved]
  - Hyperleukocytosis [Unknown]
  - Gout [Unknown]
  - Anaemia [Unknown]
  - Vitamin D decreased [Unknown]
  - Weight decreased [Unknown]
  - Blindness [Unknown]
  - Muscular weakness [Recovered/Resolved]
  - Nausea [Recovered/Resolved]
  - Benign prostatic hyperplasia [Unknown]
  - Weight decreased [Recovered/Resolved]
  - Rheumatic disorder [Unknown]
  - White blood cell disorder [Unknown]
  - Back pain [Unknown]
  - Temperature intolerance [Recovered/Resolved]
  - Nervousness [Recovered/Resolved]
  - Pain [Not Recovered/Not Resolved]
  - Constipation [Unknown]
  - Fatigue [Recovered/Resolved]
  - Gait inability [Unknown]
  - Nerve injury [Unknown]
  - Tremor [Not Recovered/Not Resolved]
  - Oedema peripheral [Unknown]
  - Off label use [Unknown]
  - Arthralgia [Not Recovered/Not Resolved]
  - Hyperhidrosis [Unknown]
  - C-reactive protein increased [Unknown]

NARRATIVE: CASE EVENT DATE: 20111122
